FAERS Safety Report 15179941 (Version 3)
Quarter: 2018Q4

REPORT INFORMATION
  Report Type: Report from Study
  Country: GB (occurrence: GB)
  Receive Date: 20180723
  Receipt Date: 20181127
  Transmission Date: 20190204
  Serious: Yes (Hospitalization, Other)
  Sender: FDA-Public Use
  Company Number: GB-AMGEN-GBRSL2018098127

PATIENT
  Sex: Female

DRUGS (2)
  1. ARANESP [Suspect]
     Active Substance: DARBEPOETIN ALFA
     Indication: PRODUCT USED FOR UNKNOWN INDICATION
     Dosage: UNK
     Route: 065
  2. IRON [Concomitant]
     Active Substance: IRON

REACTIONS (5)
  - Arteriovenous fistula site infection [Unknown]
  - Mineral supplementation [Unknown]
  - Gait disturbance [Not Recovered/Not Resolved]
  - Nerve compression [Unknown]
  - Arteriovenous fistula site complication [Unknown]
